FAERS Safety Report 13554039 (Version 2)
Quarter: 2017Q2

REPORT INFORMATION
  Report Type: Report from Study
  Country: GB (occurrence: GB)
  Receive Date: 20170517
  Receipt Date: 20170527
  Transmission Date: 20170830
  Serious: Yes (Other)
  Sender: FDA-Public Use
  Company Number: GB-ACTELION-A-CH2017-153690

PATIENT
  Age: 65 Year
  Sex: Female
  Weight: 48 kg

DRUGS (9)
  1. TRACLEER [Suspect]
     Active Substance: BOSENTAN
     Indication: SCLERODERMA ASSOCIATED DIGITAL ULCER
     Dosage: 125 MG, BID
     Route: 048
     Dates: start: 20110301
  2. TRACLEER [Suspect]
     Active Substance: BOSENTAN
     Dosage: 125 MG, QD
     Route: 048
     Dates: end: 20130222
  3. TRACLEER [Suspect]
     Active Substance: BOSENTAN
     Dosage: 125 MG, BID
     Route: 048
     Dates: start: 20161115, end: 20170424
  4. TRACLEER [Suspect]
     Active Substance: BOSENTAN
     Dosage: 62.5 MG, BID
     Route: 048
     Dates: start: 20161018, end: 20161114
  5. PREDNISOLONE. [Concomitant]
     Active Substance: PREDNISOLONE
  6. ENSURE [Concomitant]
     Active Substance: AMINO ACIDS\DEXTROSE\ELECTROLYTES NOS\SOYBEAN OIL\VITAMINS
  7. PERINDOPRIL [Concomitant]
     Active Substance: PERINDOPRIL
  8. MYCOPHENOLATE [Concomitant]
     Active Substance: MYCOPHENOLIC ACID
  9. OMEPRAZOLE. [Concomitant]
     Active Substance: OMEPRAZOLE

REACTIONS (4)
  - Decreased appetite [Not Recovered/Not Resolved]
  - Weight decreased [Not Recovered/Not Resolved]
  - Systemic scleroderma [Not Recovered/Not Resolved]
  - Disease progression [Not Recovered/Not Resolved]

NARRATIVE: CASE EVENT DATE: 20161001
